FAERS Safety Report 15543328 (Version 1)
Quarter: 2018Q4

REPORT INFORMATION
  Report Type: Spontaneous
  Country: US (occurrence: US)
  Receive Date: 20181023
  Receipt Date: 20181023
  Transmission Date: 20190205
  Serious: No
  Sender: FDA-Public Use
  Company Number: US-PERRIGO-18US000165

PATIENT
  Age: 84 Year
  Sex: Female
  Weight: 69.84 kg

DRUGS (1)
  1. KIONEX [Suspect]
     Active Substance: SODIUM POLYSTYRENE SULFONATE
     Indication: HYPERKALAEMIA
     Dosage: 7.5 MG, SINGLE
     Route: 048
     Dates: start: 20180104, end: 20180104

REACTIONS (3)
  - Throat irritation [Recovered/Resolved]
  - Choking [Recovered/Resolved]
  - Lacrimation increased [Recovered/Resolved]

NARRATIVE: CASE EVENT DATE: 20180104
